FAERS Safety Report 7306471-5 (Version None)
Quarter: 2011Q1

REPORT INFORMATION
  Report Type: 
  Country: None (occurrence: None)
  Receive Date: 20110222
  Receipt Date: 20110216
  Transmission Date: 20110831
  Serious: Yes (Other)
  Sender: FDA-Public Use
  Company Number: JP-ABBOTT-11P-087-0700351-00

PATIENT
  Sex: Male
  Weight: 51.8 kg

DRUGS (6)
  1. DARUNAVIR ETHANOLATE [Concomitant]
     Indication: HIV INFECTION
     Route: 048
     Dates: start: 20100921
  2. ETODOLAC [Concomitant]
     Indication: PAIN
     Route: 048
  3. ETODOLAC [Concomitant]
     Dates: start: 20101228
  4. EMTRICITABINE W/TENOFOVIR [Concomitant]
     Indication: HIV INFECTION
     Route: 048
     Dates: start: 20100531, end: 20110207
  5. ZITHROMAX [Concomitant]
     Indication: PAROTITIS
     Route: 048
     Dates: start: 20100614, end: 20110107
  6. NORVIR [Suspect]
     Indication: HIV INFECTION
     Route: 048
     Dates: start: 20100921

REACTIONS (4)
  - LIP EROSION [None]
  - ORAL MUCOSA EROSION [None]
  - CHEILITIS [None]
  - STOMATITIS [None]
